FAERS Safety Report 23169041 (Version 1)
Quarter: 2023Q4

REPORT INFORMATION
  Report Type: Other
  Country: US (occurrence: None)
  Receive Date: 20231110
  Receipt Date: 20231110
  Transmission Date: 20240110
  Serious: Yes (Death)
  Sender: FDA-Public Use
  Company Number: US-ROCHE-3453638

PATIENT
  Age: 84 Year
  Sex: Female

DRUGS (25)
  1. ACTEMRA [Suspect]
     Active Substance: TOCILIZUMAB
     Indication: Rheumatoid arthritis
     Dosage: STRENGTH: 162 MG/ 0.9 ML, INJECT 0.9ML SUBCUTANEOUSLY EVERY 14 DAY(S)
     Route: 058
  2. ACTEMRA [Suspect]
     Active Substance: TOCILIZUMAB
  3. ACTEMRA [Suspect]
     Active Substance: TOCILIZUMAB
     Indication: Polymyalgia rheumatica
  4. ACTEMRA [Suspect]
     Active Substance: TOCILIZUMAB
  5. ACTEMRA [Suspect]
     Active Substance: TOCILIZUMAB
     Indication: Osteoarthritis
  6. ACTEMRA [Suspect]
     Active Substance: TOCILIZUMAB
  7. ACTEMRA [Suspect]
     Active Substance: TOCILIZUMAB
     Indication: Giant cell arteritis
  8. ACTEMRA [Suspect]
     Active Substance: TOCILIZUMAB
  9. TYLENOL [Concomitant]
     Active Substance: ACETAMINOPHEN
     Indication: Pain
     Dosage: TAKE 2 TABLETS BY MOUTH EVERY SIX HOURS AS NEEDED FOR PAIN LIMIT ACETAMINOPHEN TO 4000 MG PER DAY FR
     Route: 048
  10. PROAIR HFA [Concomitant]
     Active Substance: ALBUTEROL SULFATE
     Dosage: INHALE 1 TO 2 PUFFS INTO LUNGS EVERY 4 HOURS AS NEEDED FOR SHORTNESS OF BREATH SHAKE BEFORE USING IC
  11. ERGOCALCIFEROL [Concomitant]
     Active Substance: ERGOCALCIFEROL
     Dosage: TAKE 1 CAPSULE BY MOUTH ONE TIME A DAY 1 UNIT OF VITAMIN D EQUALS 0 025 MOG OF VITAMIN D
  12. LOMOTIL [Concomitant]
     Active Substance: ATROPINE SULFATE\DIPHENOXYLATE HYDROCHLORIDE
     Dosage: TAKE 2 TABLETS BY MOUTH FOUR TIMES A DAY AS NEEDED FOR DIARRHEA
  13. FERROUS SULFATE [Concomitant]
     Active Substance: FERROUS SULFATE
     Dosage: TAKE 1 TABLET BY MOUTH ONE TIME A DAY
  14. FLONASE [Concomitant]
     Active Substance: FLUTICASONE PROPIONATE
     Dosage: USE 2 SPRAYS INTO BOTH NOSTRILS DAILY. SHAKE WELL BEFORE USE. ALTERNATE NOSTRILS EACH SPRAY
  15. FOLIC ACID [Concomitant]
     Active Substance: FOLIC ACID
     Dosage: TAKE 1 TABLET BY MOUTH EVERY DAY
  16. LASIX [Concomitant]
     Active Substance: FUROSEMIDE
     Dosage: TAKE 1 TABLET BY MOUTH ONE TIME A DAY.
  17. KEPPRA [Concomitant]
     Active Substance: LEVETIRACETAM
     Dosage: TAKE 1 TABLET BY MOUTH TWO TIMES A DAY DO NOT CRUSH
  18. COZAAR [Concomitant]
     Active Substance: LOSARTAN POTASSIUM
     Dosage: TAKE 1 TABLET BY MOUTH ONE TIME A DAY
  19. LOPRESSOR [Concomitant]
     Active Substance: METOPROLOL TARTRATE
     Dosage: TAKE 1 TABLET BY MOUTH TWO TIMES A DAY
  20. PATANOL [Concomitant]
     Active Substance: OLOPATADINE HYDROCHLORIDE
     Dosage: APPLY 1 DROP TO EYE TWO TIMES A DAY
  21. PROTONIX [Concomitant]
     Active Substance: PANTOPRAZOLE SODIUM
     Dosage: TAKE 1 TABLET BY MOUTH ONE TIME A DAY. DO NOT CRUSH
  22. KLOR-CON [Concomitant]
     Active Substance: POTASSIUM CHLORIDE
     Dosage: TAKE 1 TABLET BY MOUTH ONE TIME A DAY. DO NOT CRUSH
  23. K-TAB [Concomitant]
     Active Substance: POTASSIUM CHLORIDE
     Dosage: TAKE 1 TABLET BY MOUTH ONE TIME A DAY. DO NOT CRUSH
  24. LYRICA [Concomitant]
     Active Substance: PREGABALIN
     Dosage: TAKE 1 CAPSULE BY MOUTH TWICE A DAY
  25. AMBIEN [Concomitant]
     Active Substance: ZOLPIDEM TARTRATE
     Dosage: TAKE 1 TABLET BY MOUTH AT BEDTIME

REACTIONS (1)
  - Death [Fatal]

NARRATIVE: CASE EVENT DATE: 20231105
